FAERS Safety Report 9055201 (Version 1)
Quarter: 2013Q1

REPORT INFORMATION
  Report Type: Spontaneous
  Country: FR (occurrence: FR)
  Receive Date: 20130206
  Receipt Date: 20130206
  Transmission Date: 20140127
  Serious: Yes (Hospitalization)
  Sender: FDA-Public Use
  Company Number: FR-PFIZER INC-2013045859

PATIENT
  Age: 37 Year
  Sex: Female

DRUGS (13)
  1. RAPAMUNE [Suspect]
     Dosage: 2 MG, 1X/DAY
     Route: 048
     Dates: start: 20120625, end: 20120802
  2. CORTANCYL [Concomitant]
     Dosage: UNK
  3. NIVAQUINE [Concomitant]
     Dosage: UNK
  4. LEVOTHYROX [Concomitant]
     Dosage: UNK
  5. MOPRAL [Concomitant]
     Dosage: UNK
  6. LEDERFOLINE [Concomitant]
     Dosage: UNK
  7. VITAMIN B12 [Concomitant]
     Dosage: UNK
  8. ZYMA-D2 [Concomitant]
     Dosage: UNK
  9. UVEDOSE [Concomitant]
     Dosage: UNK
  10. DEXERYL [Concomitant]
     Dosage: UNK
  11. LACRYVISC [Concomitant]
     Dosage: UNK
  12. DACRYOSERUM [Concomitant]
     Dosage: UNK
  13. MABTHERA [Concomitant]
     Dosage: 6 COURSES
     Dates: start: 20120522, end: 20120723

REACTIONS (1)
  - Mouth ulceration [Recovered/Resolved]
